FAERS Safety Report 22371530 (Version 1)
Quarter: 2023Q2

REPORT INFORMATION
  Report Type: Spontaneous
  Country: CN (occurrence: CN)
  Receive Date: 20230526
  Receipt Date: 20230526
  Transmission Date: 20230722
  Serious: Yes (Other)
  Sender: FDA-Public Use
  Company Number: CN-MLMSERVICE-2023051142841601

PATIENT
  Age: 51 Year
  Sex: Male

DRUGS (6)
  1. VANCOMYCIN [Suspect]
     Active Substance: VANCOMYCIN
     Indication: Anti-infective therapy
     Dates: start: 2020
  2. METHYLPREDNISOLONE [Suspect]
     Active Substance: METHYLPREDNISOLONE
     Indication: Pneumonitis
     Dosage: MEGA DOSE
     Dates: start: 2020
  3. MEROPENEM [Suspect]
     Active Substance: MEROPENEM
     Indication: Anti-infective therapy
     Dates: start: 2020
  4. SALAZOSULFADIMIDINE [Suspect]
     Active Substance: SALAZOSULFADIMIDINE
     Indication: Immunosuppressant drug therapy
  5. OXYGEN [Concomitant]
     Active Substance: OXYGEN
  6. SALAZOSULFADIMIDINE [Suspect]
     Active Substance: SALAZOSULFADIMIDINE
     Indication: Ankylosing spondylitis

REACTIONS (1)
  - Myelosuppression [Unknown]

NARRATIVE: CASE EVENT DATE: 20200101
